FAERS Safety Report 23812539 (Version 1)
Quarter: 2024Q2

REPORT INFORMATION
  Report Type: Report from Study
  Country: US (occurrence: US)
  Receive Date: 20240503
  Receipt Date: 20240503
  Transmission Date: 20240716
  Serious: Yes (Hospitalization, Other)
  Sender: FDA-Public Use
  Company Number: US-ABBVIE-5739534

PATIENT
  Age: 53 Year
  Sex: Female
  Weight: 75 kg

DRUGS (7)
  1. BOTOX [Suspect]
     Active Substance: ONABOTULINUMTOXINA
     Indication: Migraine
     Dosage: TIME INTERVAL: AS NECESSARY: UNKNOWN
     Route: 030
     Dates: start: 202212, end: 202212
  2. BOTOX [Suspect]
     Active Substance: ONABOTULINUMTOXINA
     Indication: Migraine
     Dosage: TIME INTERVAL: AS NECESSARY
     Route: 065
     Dates: start: 20150101, end: 20150101
  3. PREGABALIN [Concomitant]
     Active Substance: PREGABALIN
     Indication: Back pain
  4. REPATHA [Concomitant]
     Active Substance: EVOLOCUMAB
     Indication: Cerebrovascular accident prophylaxis
  5. FAMOTIDINE [Concomitant]
     Active Substance: FAMOTIDINE
     Indication: Gastrooesophageal reflux disease
  6. METOPROLOL [Concomitant]
     Active Substance: METOPROLOL
     Indication: Heart rate
  7. TIZANIDINE [Concomitant]
     Active Substance: TIZANIDINE
     Indication: Myalgia

REACTIONS (3)
  - Cerebrovascular accident [Recovering/Resolving]
  - Therapeutic product effect decreased [Not Recovered/Not Resolved]
  - Migraine [Not Recovered/Not Resolved]

NARRATIVE: CASE EVENT DATE: 20210801
